FAERS Safety Report 6427630-X (Version None)
Quarter: 2009Q4

REPORT INFORMATION
  Report Type: 
  Country: None (occurrence: None)
  Receive Date: 20091104
  Receipt Date: 20091022
  Transmission Date: 20100525
  Serious: Yes (Hospitalization)
  Sender: FDA-Public Use
  Company Number: GB-GENENTECH-293089

PATIENT
  Sex: Female

DRUGS (4)
  1. BEVACIZUMAB [Suspect]
     Indication: OVARIAN EPITHELIAL CANCER
     Dosage: 525 MG, Q3W
     Route: 042
     Dates: start: 20070531
  2. CARBOPLATIN [Suspect]
     Indication: OVARIAN CANCER
     Dosage: 485 MG, UNK
     Route: 042
     Dates: start: 20070531
  3. PACLITAXEL [Suspect]
     Indication: OVARIAN CANCER
     Dosage: 175 MG, UNK
     Route: 042
     Dates: start: 20070531
  4. OMEPRAZOLE [Concomitant]
     Indication: DRUG USE FOR UNKNOWN INDICATION
     Dosage: UNK
     Dates: start: 20071119

REACTIONS (1)
  - HERPES ZOSTER [None]
